FAERS Safety Report 18889569 (Version 1)
Quarter: 2021Q1

REPORT INFORMATION
  Report Type: Spontaneous
  Country: US (occurrence: US)
  Receive Date: 20210213
  Receipt Date: 20210213
  Transmission Date: 20210420
  Serious: No
  Sender: FDA-Public Use
  Company Number: US-SA-2021SA048533

PATIENT
  Age: 97 Year
  Sex: Male

DRUGS (1)
  1. DUPIXENT [Suspect]
     Active Substance: DUPILUMAB
     Indication: ECZEMA
     Dosage: UNK
     Dates: end: 20201220

REACTIONS (3)
  - Vision blurred [Unknown]
  - Product dose omission issue [Unknown]
  - Visual impairment [Unknown]

NARRATIVE: CASE EVENT DATE: 20201220
